FAERS Safety Report 15942852 (Version 1)
Quarter: 2019Q1

REPORT INFORMATION
  Report Type: Report from Study
  Country: IT (occurrence: IT)
  Receive Date: 20190209
  Receipt Date: 20190209
  Transmission Date: 20190417
  Serious: Yes (Hospitalization, Other)
  Sender: FDA-Public Use
  Company Number: IT-ACCORD-106308

PATIENT
  Age: 76 Year
  Sex: Male

DRUGS (2)
  1. ATORVASTATIN/ATORVASTATIN CALCIUM [Suspect]
     Active Substance: ATORVASTATIN CALCIUM
     Indication: PRODUCT USED FOR UNKNOWN INDICATION
     Dosage: REGIMEN 1
  2. FLU SEASONAL TIV DRESDEN [Interacting]
     Active Substance: INFLUENZA VIRUS VACCINE TRIVALENT TYPE A+B
     Indication: PROPHYLAXIS

REACTIONS (10)
  - Rash [Unknown]
  - Immunisation reaction [None]
  - Renal failure [Unknown]
  - Drug interaction [Unknown]
  - Rhabdomyolysis [Unknown]
  - Skin necrosis [Unknown]
  - Dermatitis [Unknown]
  - Stevens-Johnson syndrome [Unknown]
  - Skin exfoliation [Unknown]
  - Biopsy skin abnormal [Unknown]
